FAERS Safety Report 25645148 (Version 4)
Quarter: 2025Q4

REPORT INFORMATION
  Report Type: Report from Study
  Country: CA (occurrence: CA)
  Receive Date: 20250805
  Receipt Date: 20251014
  Transmission Date: 20260118
  Serious: Yes (Other)
  Sender: JOHNSON AND JOHNSON
  Company Number: CA-JNJFOC-20250735071

PATIENT
  Age: 64 Year
  Sex: Female
  Weight: 61.23 kg

DRUGS (1)
  1. SIMPONI [Suspect]
     Active Substance: GOLIMUMAB
     Indication: Psoriatic arthropathy
     Route: 058

REACTIONS (6)
  - Psoriatic arthropathy [Unknown]
  - Gingivitis [Recovered/Resolved]
  - Injection site bruising [Unknown]
  - Device physical property issue [Unknown]
  - Therapy cessation [Unknown]
  - Inappropriate schedule of product administration [Unknown]

NARRATIVE: CASE EVENT DATE: 20250829
